FAERS Safety Report 22124241 (Version 3)
Quarter: 2023Q2

REPORT INFORMATION
  Report Type: Spontaneous
  Country: IT (occurrence: None)
  Receive Date: 20230322
  Receipt Date: 20230411
  Transmission Date: 20230721
  Serious: Yes (Other)
  Sender: FDA-Public Use
  Company Number: 2023A063156

PATIENT
  Age: 54 Year
  Sex: Male

DRUGS (12)
  1. OMEPRAZOLE [Suspect]
     Active Substance: OMEPRAZOLE
     Indication: Product used for unknown indication
     Dosage: 3 DF, SINGLE3.0DF ONCE/SINGLE ADMINISTRATION
     Route: 048
  2. OMEPRAZOLE [Suspect]
     Active Substance: OMEPRAZOLE
     Indication: Intentional self-injury
     Dosage: 3 DF, SINGLE3.0DF ONCE/SINGLE ADMINISTRATION
     Route: 048
  3. FERROUS SULFATE [Suspect]
     Active Substance: FERROUS SULFATE
     Indication: Product used for unknown indication
     Dosage: 3 DF, SINGLE3.0DF ONCE/SINGLE ADMINISTRATION
     Route: 048
     Dates: start: 20230305
  4. FERROUS SULFATE [Suspect]
     Active Substance: FERROUS SULFATE
     Indication: Intentional self-injury
     Dosage: 3 DF, SINGLE3.0DF ONCE/SINGLE ADMINISTRATION
     Route: 048
     Dates: start: 20230305
  5. RIVOTRIL [Suspect]
     Active Substance: CLONAZEPAM
     Indication: Product used for unknown indication
     Dosage: 30 DROPS, SINGLE ONCE/SINGLE ADMINISTRATION
     Route: 048
  6. RIVOTRIL [Suspect]
     Active Substance: CLONAZEPAM
     Indication: Intentional self-injury
     Dosage: 30 DROPS, SINGLE ONCE/SINGLE ADMINISTRATION
     Route: 048
  7. ACETAMINOPHEN\CODEINE PHOSPHATE [Suspect]
     Active Substance: ACETAMINOPHEN\CODEINE PHOSPHATE
     Indication: Product used for unknown indication
     Dosage: 2 DF, SINGLE2.0DF ONCE/SINGLE ADMINISTRATION
     Route: 048
  8. ACETAMINOPHEN\CODEINE PHOSPHATE [Suspect]
     Active Substance: ACETAMINOPHEN\CODEINE PHOSPHATE
     Indication: Intentional self-injury
     Dosage: 2 DF, SINGLE2.0DF ONCE/SINGLE ADMINISTRATION
     Route: 048
  9. IBUPROFEN [Suspect]
     Active Substance: IBUPROFEN
     Indication: Product used for unknown indication
     Dosage: 3 DF, SINGLE3.0DF ONCE/SINGLE ADMINISTRATION
     Route: 048
  10. IBUPROFEN [Suspect]
     Active Substance: IBUPROFEN
     Indication: Intentional self-injury
     Dosage: 3 DF, SINGLE3.0DF ONCE/SINGLE ADMINISTRATION
     Route: 048
  11. OMEGA-3 FATTY ACIDS [Suspect]
     Active Substance: OMEGA-3 FATTY ACIDS
     Indication: Product used for unknown indication
     Dosage: UNK, ONE SINGLE INTAKE
     Route: 048
  12. OMEGA-3 FATTY ACIDS [Suspect]
     Active Substance: OMEGA-3 FATTY ACIDS
     Indication: Intentional self-injury
     Dosage: UNK, ONE SINGLE INTAKE
     Route: 048

REACTIONS (2)
  - Intentional self-injury [Unknown]
  - Intentional overdose [Unknown]

NARRATIVE: CASE EVENT DATE: 20230305
